FAERS Safety Report 8512939-6 (Version None)
Quarter: 2012Q3

REPORT INFORMATION
  Report Type: 
  Country: None (occurrence: None)
  Receive Date: 20120716
  Receipt Date: 20120711
  Transmission Date: 20120928
  Serious: Yes (Death, Hospitalization)
  Sender: FDA-Public Use
  Company Number: US-ELI_LILLY_AND_COMPANY-US201207003323

PATIENT
  Sex: Female

DRUGS (9)
  1. ADCIRCA [Suspect]
     Indication: PULMONARY HYPERTENSION
     Dosage: 40 MG, QD
  2. NORCO [Concomitant]
  3. DIGOXIN [Concomitant]
  4. VITAMIN D [Concomitant]
  5. ASPIRIN [Concomitant]
  6. ATIVAN [Concomitant]
  7. ALDACTONE [Concomitant]
     Dosage: UNK
  8. BUMEX [Concomitant]
  9. VITAMIN A [Concomitant]

REACTIONS (2)
  - DEATH [None]
  - CHEST PAIN [None]
